FAERS Safety Report 9813090 (Version 1)
Quarter: 2014Q1

REPORT INFORMATION
  Report Type: Spontaneous
  Country: US (occurrence: None)
  Receive Date: 20140110
  Receipt Date: 20140110
  Transmission Date: 20141002
  Serious: Yes (Disabling)
  Sender: FDA-Public Use
  Company Number: None

PATIENT
  Age: 34 Year
  Sex: Female
  Weight: 63.5 kg

DRUGS (1)
  1. PARAGARD [Suspect]
     Dates: start: 20110509, end: 20131114

REACTIONS (21)
  - Haemorrhage [None]
  - Muscle spasms [None]
  - Menorrhagia [None]
  - Agitation [None]
  - Anxiety [None]
  - Initial insomnia [None]
  - Middle insomnia [None]
  - Vision blurred [None]
  - Dizziness [None]
  - Fatigue [None]
  - Depression [None]
  - Suicidal ideation [None]
  - Feeling abnormal [None]
  - Amnesia [None]
  - Disturbance in attention [None]
  - Bedridden [None]
  - Blood copper increased [None]
  - Metal poisoning [None]
  - Emotional disorder [None]
  - Marital problem [None]
  - Family stress [None]
